FAERS Safety Report 6390767-8 (Version None)
Quarter: 2009Q4

REPORT INFORMATION
  Report Type: 
  Country: None (occurrence: None)
  Receive Date: 20091001
  Receipt Date: 20090713
  Transmission Date: 20100525
  Serious: No
  Sender: FDA-Public Use
  Company Number: 1000007419

PATIENT
  Age: 69 Year
  Sex: Female

DRUGS (3)
  1. BYSTOLIC [Suspect]
     Indication: SUPRAVENTRICULAR TACHYCARDIA
     Dosage: 5 MG (5 MG, 1 IN 1 D), ORAL
     Route: 048
     Dates: start: 20090704
  2. FORTEO [Concomitant]
  3. DILANTIN [Concomitant]

REACTIONS (3)
  - DIZZINESS [None]
  - FATIGUE [None]
  - TREMOR [None]
